FAERS Safety Report 19369500 (Version 3)
Quarter: 2021Q3

REPORT INFORMATION
  Report Type: Spontaneous
  Country: US (occurrence: US)
  Receive Date: 20210603
  Receipt Date: 20210727
  Transmission Date: 20211014
  Serious: Yes (Hospitalization)
  Sender: FDA-Public Use
  Company Number: US-BIOHAVEN PHARMACEUTICALS-2021BHV00686

PATIENT
  Sex: Male
  Weight: 113.38 kg

DRUGS (8)
  1. NAPROXEN. [Concomitant]
     Active Substance: NAPROXEN
     Dosage: 500 MG, UP TO 2X/DAY AS NEEDED
     Route: 048
  2. CENTRUM ULTRA MEN^S [Concomitant]
     Dosage: 1 TABLETS, 1X/DAY AFTER DINNER
     Route: 048
  3. DOVATO [Concomitant]
     Active Substance: DOLUTEGRAVIR SODIUM\LAMIVUDINE
     Dosage: 1 TABLETS, 1X/DAY
     Route: 048
  4. GENERIC ZYRTEC [Concomitant]
     Active Substance: CETIRIZINE HYDROCHLORIDE
     Dosage: 10 MG, 1X/DAY EVERY MORNING
     Route: 048
  5. VITAMIN D3 [Concomitant]
     Active Substance: CHOLECALCIFEROL
     Dosage: 1000 UNITED STATES PHARMACOPEIA UNIT
     Route: 048
  6. NURTEC ODT [Suspect]
     Active Substance: RIMEGEPANT SULFATE
     Dosage: 75 MG, AS OFTEN AS EVERY OTHER DAY OR EVERY 2 DAYS AS NEEDED
     Route: 048
  7. NURTEC ODT [Suspect]
     Active Substance: RIMEGEPANT SULFATE
     Indication: MIGRAINE
     Dosage: 75 MG, AS NEEDED
     Route: 048
     Dates: start: 202007
  8. EXCEDRIN MIGRAINE [Concomitant]
     Active Substance: ACETAMINOPHEN\ASPIRIN\CAFFEINE
     Dosage: 1 TABLETS, UP TO 4X/DAY (EVERY 6 HOURS AS NEEDED FOR PAIN)
     Route: 048

REACTIONS (3)
  - Pituitary tumour benign [Recovered/Resolved]
  - Migraine [Not Recovered/Not Resolved]
  - Loss of therapeutic response [Not Recovered/Not Resolved]

NARRATIVE: CASE EVENT DATE: 2021
